FAERS Safety Report 9027242 (Version 2)
Quarter: 2013Q1

REPORT INFORMATION
  Report Type: Report from Study
  Country: NL (occurrence: NL)
  Receive Date: 20130123
  Receipt Date: 20130215
  Transmission Date: 20140127
  Serious: Yes (Hospitalization, Other)
  Sender: FDA-Public Use
  Company Number: NL-COVIDIEN/TYCO HEALTHCARE/MALLINCKRODT-T201300161

PATIENT
  Age: 52 Year
  Sex: Female
  Weight: 50 kg

DRUGS (5)
  1. EXALGO EXTENDED RELEASE [Suspect]
     Indication: CANCER PAIN
     Dosage: 16 MG, IN 1 DAY
     Route: 048
     Dates: start: 20001209
  2. EXALGO EXTENDED RELEASE [Suspect]
     Dosage: 48 MG, IN 1 DAY
     Route: 048
     Dates: start: 20010806
  3. EXALGO EXTENDED RELEASE [Suspect]
     Dosage: 40 MG, 1 IN 1 DAY
     Route: 048
     Dates: end: 20011203
  4. CITALOPRAM [Concomitant]
     Dosage: , 1 IN 1 DAY
     Route: 048
  5. OXAZEPAM [Concomitant]
     Dosage: 30 MG, IN 1 DAY
     Route: 048

REACTIONS (2)
  - Suicide attempt [Recovered/Resolved]
  - Depression [Recovered/Resolved]
